FAERS Safety Report 5512866-2 (Version None)
Quarter: 2007Q4

REPORT INFORMATION
  Report Type: 
  Country: None (occurrence: None)
  Receive Date: 20071112
  Receipt Date: 20071031
  Transmission Date: 20080405
  Serious: Yes (Hospitalization)
  Sender: FDA-Public Use
  Company Number: B0494628A

PATIENT
  Sex: Male

DRUGS (2)
  1. NIQUITIN CQ CLEAR 14MG [Suspect]
     Dosage: 14MG PER DAY
     Route: 062
     Dates: start: 20071028, end: 20071029
  2. NICOTINELL [Concomitant]
     Route: 048

REACTIONS (1)
  - SYNCOPE [None]
